FAERS Safety Report 21382541 (Version 3)
Quarter: 2023Q1

REPORT INFORMATION
  Report Type: Report from Study
  Country: FR (occurrence: None)
  Receive Date: 20220927
  Receipt Date: 20230123
  Transmission Date: 20230418
  Serious: Yes (Hospitalization)
  Sender: FDA-Public Use
  Company Number: FR-ROCHE-3181971

PATIENT
  Age: 75 Year
  Sex: Male
  Weight: 91 kg

DRUGS (6)
  1. GLOFITAMAB [Suspect]
     Active Substance: GLOFITAMAB
     Indication: Lymphoma
     Dosage: ON 04/MAY/2022, PATIENT RECEIVED MOST RECENT DOSE OF IV GLOFITAMAB 10 MG BEFORE SAE
     Route: 042
     Dates: start: 20220502
  2. GLOFITAMAB [Suspect]
     Active Substance: GLOFITAMAB
     Route: 042
     Dates: start: 20220504
  3. OBINUTUZUMAB [Suspect]
     Active Substance: OBINUTUZUMAB
     Indication: Lymphoma
     Dosage: ON 02/MAY/2022, HE RECEIVED C1D1 DOSE OF GLOFITAMAB?ON 04/MAY/2022, HE RECEIVED C1D3 DOSE OF GLOFITA
     Route: 042
     Dates: start: 20220429
  4. LEVOTHYROXINE [Concomitant]
     Active Substance: LEVOTHYROXINE
  5. ALFUZOSIN [Concomitant]
     Active Substance: ALFUZOSIN
  6. GINKGO EXTRACT\HEPTAMINOL\TROXERUTIN [Concomitant]
     Active Substance: GINKGO\HEPTAMINOL\TROXERUTIN

REACTIONS (3)
  - Rash [Recovered/Resolved with Sequelae]
  - Gastrointestinal haemorrhage [Recovered/Resolved with Sequelae]
  - Cytokine release syndrome [Recovered/Resolved]

NARRATIVE: CASE EVENT DATE: 20220503
